FAERS Safety Report 24583016 (Version 2)
Quarter: 2025Q1

REPORT INFORMATION
  Report Type: Spontaneous
  Country: US (occurrence: US)
  Receive Date: 20241106
  Receipt Date: 20250226
  Transmission Date: 20250409
  Serious: No
  Sender: UCB
  Company Number: US-UCBSA-2024042574

PATIENT
  Age: 11 Year
  Sex: Female

DRUGS (23)
  1. LACOSAMIDE [Suspect]
     Active Substance: LACOSAMIDE
     Indication: New onset refractory status epilepticus
  2. LACOSAMIDE [Suspect]
     Active Substance: LACOSAMIDE
     Indication: Encephalitis autoimmune
  3. LACOSAMIDE [Suspect]
     Active Substance: LACOSAMIDE
     Indication: Off label use
  4. LEVETIRACETAM [Suspect]
     Active Substance: LEVETIRACETAM
     Indication: New onset refractory status epilepticus
  5. LEVETIRACETAM [Suspect]
     Active Substance: LEVETIRACETAM
     Indication: Encephalitis autoimmune
  6. LEVETIRACETAM [Suspect]
     Active Substance: LEVETIRACETAM
     Indication: Off label use
  7. PHENOBARBITAL [Suspect]
     Active Substance: PHENOBARBITAL
     Indication: New onset refractory status epilepticus
  8. PHENOBARBITAL [Suspect]
     Active Substance: PHENOBARBITAL
     Indication: Encephalitis autoimmune
  9. PERAMPANEL [Suspect]
     Active Substance: PERAMPANEL
     Indication: New onset refractory status epilepticus
  10. PERAMPANEL [Suspect]
     Active Substance: PERAMPANEL
     Indication: Encephalitis autoimmune
  11. CANNABIDIOL [Suspect]
     Active Substance: CANNABIDIOL
     Indication: New onset refractory status epilepticus
  12. CANNABIDIOL [Suspect]
     Active Substance: CANNABIDIOL
     Indication: Encephalitis autoimmune
  13. CLOBAZAM [Concomitant]
     Active Substance: CLOBAZAM
     Indication: New onset refractory status epilepticus
  14. CLOBAZAM [Concomitant]
     Active Substance: CLOBAZAM
     Indication: Encephalitis autoimmune
  15. MIDAZOLAM [Concomitant]
     Active Substance: MIDAZOLAM
     Indication: Anaesthesia procedure
  16. PENTOBARBITAL [Concomitant]
     Active Substance: PENTOBARBITAL
     Indication: Anaesthesia procedure
  17. KETAMINE [Concomitant]
     Active Substance: KETAMINE
     Indication: Anaesthesia procedure
  18. RITUXIMAB [Concomitant]
     Active Substance: RITUXIMAB
     Indication: Product used for unknown indication
  19. ANAKINRA [Concomitant]
     Active Substance: ANAKINRA
     Indication: Product used for unknown indication
  20. DEXAMETHASONE [Concomitant]
     Active Substance: DEXAMETHASONE
     Indication: Encephalitis autoimmune
     Route: 037
  21. PLASMA-PLEX [Concomitant]
     Active Substance: PLASMA PROTEIN FRACTION (HUMAN)
     Indication: Product used for unknown indication
  22. METHYLPREDNISOLONE [Concomitant]
     Active Substance: METHYLPREDNISOLONE
     Indication: Immunodeficiency
     Route: 042
  23. IMMUNE GLOBULIN NOS [Concomitant]
     Active Substance: IMMUNE GLOBULIN NOS
     Indication: Immunodeficiency
     Route: 042

REACTIONS (2)
  - Multiple-drug resistance [Unknown]
  - Off label use [Unknown]
